FAERS Safety Report 4731693-7 (Version None)
Quarter: 2005Q3

REPORT INFORMATION
  Report Type: 
  Country: None (occurrence: None)
  Receive Date: 20050725
  Receipt Date: 20041021
  Transmission Date: 20060218
  Serious: Yes (Disabling)
  Sender: FDA-Public Use
  Company Number: WAES 0306USA00863

PATIENT
  Age: 41 Year
  Sex: Female
  Weight: 132.9039 kg

DRUGS (2)
  1. VIOXX [Suspect]
     Dosage: 25 MG/DAILY/PO
     Route: 048
     Dates: start: 20001107
  2. EFFEXOR [Concomitant]

REACTIONS (20)
  - ADVERSE EVENT [None]
  - BRONCHOSPASM [None]
  - CHEST PAIN [None]
  - COUGH [None]
  - DIABETES MELLITUS [None]
  - EPICONDYLITIS [None]
  - FLANK PAIN [None]
  - GASTROOESOPHAGEAL REFLUX DISEASE [None]
  - HIATUS HERNIA [None]
  - HYPOGLYCAEMIA [None]
  - INSOMNIA [None]
  - IRRITABLE BOWEL SYNDROME [None]
  - MUSCULOSKELETAL PAIN [None]
  - NECK INJURY [None]
  - OSTEOARTHRITIS [None]
  - OVARIAN CYST [None]
  - RECTAL HAEMORRHAGE [None]
  - ROAD TRAFFIC ACCIDENT [None]
  - SQUAMOUS ENDOMETRIAL CARCINOMA [None]
  - UTERINE LEIOMYOMA [None]
